FAERS Safety Report 11221988 (Version 2)
Quarter: 2015Q3

REPORT INFORMATION
  Report Type: Spontaneous
  Country: US (occurrence: US)
  Receive Date: 20150626
  Receipt Date: 20150731
  Transmission Date: 20151125
  Serious: Yes (Hospitalization)
  Sender: FDA-Public Use
  Company Number: US-009507513-1506USA008559

PATIENT
  Sex: Male

DRUGS (6)
  1. TICE BCG [Suspect]
     Active Substance: BACILLUS CALMETTE-GUERIN SUBSTRAIN TICE LIVE ANTIGEN
     Dosage: THROUGH THE BLADDER
     Route: 043
     Dates: start: 20140307, end: 20140307
  2. TICE BCG [Suspect]
     Active Substance: BACILLUS CALMETTE-GUERIN SUBSTRAIN TICE LIVE ANTIGEN
     Indication: BLADDER CANCER
     Dosage: THROUGH THE BLADDER
     Route: 043
     Dates: start: 20140228, end: 20140228
  3. TICE BCG [Suspect]
     Active Substance: BACILLUS CALMETTE-GUERIN SUBSTRAIN TICE LIVE ANTIGEN
     Dosage: THROUGH THE BLADDER
     Route: 043
     Dates: start: 20140313, end: 20140313
  4. TICE BCG [Suspect]
     Active Substance: BACILLUS CALMETTE-GUERIN SUBSTRAIN TICE LIVE ANTIGEN
     Dosage: THROUGH THE BLADDER
     Route: 043
     Dates: start: 20140321, end: 20140321
  5. TICE BCG [Suspect]
     Active Substance: BACILLUS CALMETTE-GUERIN SUBSTRAIN TICE LIVE ANTIGEN
     Dosage: THROUGH THE BLADDER
     Route: 043
     Dates: start: 20140404, end: 20150405
  6. TICE BCG [Suspect]
     Active Substance: BACILLUS CALMETTE-GUERIN SUBSTRAIN TICE LIVE ANTIGEN
     Dosage: THROUGH THE BLADDER
     Route: 043
     Dates: start: 20140328, end: 20140328

REACTIONS (1)
  - Tuberculosis of central nervous system [Not Recovered/Not Resolved]
